FAERS Safety Report 6741196-6 (Version None)
Quarter: 2010Q2

REPORT INFORMATION
  Report Type: 
  Country: None (occurrence: None)
  Receive Date: 20100525
  Receipt Date: 20100525
  Transmission Date: 20101027
  Serious: Yes (Life-Threatening)
  Sender: FDA-Public Use
  Company Number: None

PATIENT
  Age: 8 Month
  Weight: 9.9791 kg

DRUGS (1)
  1. HYLAND'S TEETHING TABLETS HOMEOPATHIC [Suspect]
     Indication: TEETHING
     Dosage: 2 TABLETS 3 DOSES IN 24HRS PO
     Route: 048
     Dates: start: 20100517, end: 20100519

REACTIONS (6)
  - APNOEA [None]
  - HYPERSOMNIA [None]
  - LETHARGY [None]
  - OVERDOSE [None]
  - PALLOR [None]
  - PRODUCT FORMULATION ISSUE [None]
